FAERS Safety Report 19215171 (Version 4)
Quarter: 2023Q1

REPORT INFORMATION
  Report Type: Spontaneous
  Country: US (occurrence: US)
  Receive Date: 20210504
  Receipt Date: 20230210
  Transmission Date: 20230418
  Serious: Yes (Other)
  Sender: FDA-Public Use
  Company Number: US-GILEAD-2021-0527872

PATIENT
  Age: 63 Year
  Sex: Male
  Weight: 113.38 kg

DRUGS (14)
  1. TRUVADA [Suspect]
     Active Substance: EMTRICITABINE\TENOFOVIR DISOPROXIL FUMARATE
     Indication: HIV infection
     Dosage: UNK
     Route: 048
     Dates: start: 2004, end: 202009
  2. TRUVADA [Suspect]
     Active Substance: EMTRICITABINE\TENOFOVIR DISOPROXIL FUMARATE
     Dosage: UNK
     Route: 048
     Dates: start: 20070727, end: 20200302
  3. TRUVADA [Suspect]
     Active Substance: EMTRICITABINE\TENOFOVIR DISOPROXIL FUMARATE
     Dosage: UNK
     Route: 048
     Dates: start: 20040627, end: 20201201
  4. TRUVADA [Suspect]
     Active Substance: EMTRICITABINE\TENOFOVIR DISOPROXIL FUMARATE
     Dosage: UNK
     Route: 048
     Dates: start: 20070627, end: 20201201
  5. DESCOVY [Concomitant]
     Active Substance: EMTRICITABINE\TENOFOVIR ALAFENAMIDE FUMARATE
  6. BIKTARVY [Concomitant]
     Active Substance: BICTEGRAVIR SODIUM\EMTRICITABINE\TENOFOVIR ALAFENAMIDE FUMARATE
  7. GENVOYA [Concomitant]
     Active Substance: COBICISTAT\ELVITEGRAVIR\EMTRICITABINE\TENOFOVIR ALAFENAMIDE FUMARATE
  8. HARVONI [Concomitant]
     Active Substance: LEDIPASVIR\SOFOSBUVIR
  9. TYLENOL [Concomitant]
     Active Substance: ACETAMINOPHEN
  10. NORVIR [Concomitant]
     Active Substance: RITONAVIR
  11. REYATAZ [Concomitant]
     Active Substance: ATAZANAVIR SULFATE
  12. SUSTIVA [Concomitant]
     Active Substance: EFAVIRENZ
  13. CALCIUM [Concomitant]
     Active Substance: CALCIUM
  14. IBUPROFEN [Concomitant]
     Active Substance: IBUPROFEN

REACTIONS (15)
  - Multiple fractures [Unknown]
  - Osteoporosis [Not Recovered/Not Resolved]
  - Spinal fracture [Not Recovered/Not Resolved]
  - Renal failure [Not Recovered/Not Resolved]
  - Pathological fracture [Not Recovered/Not Resolved]
  - Emotional distress [Not Recovered/Not Resolved]
  - Anhedonia [Not Recovered/Not Resolved]
  - Anxiety [Not Recovered/Not Resolved]
  - Gait disturbance [Unknown]
  - Dyspareunia [Unknown]
  - Physical disability [Unknown]
  - Bone density decreased [Unknown]
  - Insomnia [Unknown]
  - Pain [Not Recovered/Not Resolved]
  - Osteopenia [Not Recovered/Not Resolved]

NARRATIVE: CASE EVENT DATE: 20190614
